FAERS Safety Report 6385252-3 (Version None)
Quarter: 2009Q4

REPORT INFORMATION
  Report Type: 
  Country: None (occurrence: None)
  Receive Date: 20091002
  Receipt Date: 20080728
  Transmission Date: 20100525
  Serious: No
  Sender: FDA-Public Use
  Company Number: US-ASTRAZENECA-2008UW15510

PATIENT
  Age: 67 Year
  Sex: Female
  Weight: 59 kg

DRUGS (8)
  1. ARIMIDEX [Suspect]
     Indication: BREAST CANCER FEMALE
     Route: 048
     Dates: start: 20080201
  2. PRAVACHOL [Concomitant]
  3. ZETIA [Concomitant]
  4. LORAZEPAM [Concomitant]
  5. GRAPESEED EXTRACT [Concomitant]
  6. MULTI-VITAMIN [Concomitant]
  7. MAGNESIUM [Concomitant]
  8. OSTEO BI-FLEX [Concomitant]

REACTIONS (4)
  - ALOPECIA [None]
  - ARTHRALGIA [None]
  - BONE PAIN [None]
  - HYPOAESTHESIA [None]
